FAERS Safety Report 8597043-3 (Version None)
Quarter: 2012Q3

REPORT INFORMATION
  Report Type: 
  Country: None (occurrence: None)
  Receive Date: 20120816
  Receipt Date: 20120807
  Transmission Date: 20120928
  Serious: Yes (Hospitalization)
  Sender: FDA-Public Use
  Company Number: NL-AMGEN-NLDSP2012050874

PATIENT
  Age: 58 Year
  Sex: Female

DRUGS (4)
  1. ACETAMINOPHEN [Concomitant]
  2. ENBREL [Suspect]
     Indication: PSORIASIS
     Dosage: 50 MG, WEEKLY
     Dates: start: 20110101
  3. FRAXIPARINE                        /01437701/ [Concomitant]
  4. PSORIASIS M [Concomitant]

REACTIONS (1)
  - ANKLE FRACTURE [None]
